FAERS Safety Report 9046210 (Version 1)
Quarter: 2013Q1

REPORT INFORMATION
  Report Type: Spontaneous
  Country: MX (occurrence: MX)
  Receive Date: 20130201
  Receipt Date: 20130201
  Transmission Date: 20140127
  Serious: Yes (Hospitalization, Other)
  Sender: FDA-Public Use
  Company Number: PHHY2013MX008150

PATIENT
  Sex: Male

DRUGS (1)
  1. RASILEZ HCT [Suspect]
     Indication: HYPERTENSION
     Dosage: 1 DF, DAILY (300 MG ALIS, 12.5 MG HYDR)
     Route: 048
     Dates: start: 201201, end: 201211

REACTIONS (2)
  - Renal failure [Not Recovered/Not Resolved]
  - Loss of consciousness [Not Recovered/Not Resolved]
